FAERS Safety Report 18235976 (Version 1)
Quarter: 2020Q3

REPORT INFORMATION
  Report Type: Spontaneous
  Country: US (occurrence: US)
  Receive Date: 20200905
  Receipt Date: 20200905
  Transmission Date: 20201103
  Serious: No
  Sender: FDA-Public Use
  Company Number: US-TEVA-2020-US-1824447

PATIENT
  Age: 52 Year
  Sex: Female

DRUGS (9)
  1. OMEPRAZOLE TAB 20 MG [Concomitant]
  2. CENTRUM TAB PERFORMA [Concomitant]
  3. ASPIRIN LOW TAB 81 MG EC [Concomitant]
  4. COPAXONE [Suspect]
     Active Substance: GLATIRAMER ACETATE
     Route: 058
     Dates: start: 20190920
  5. BIOTIN TAB 10 MG [Concomitant]
  6. CITALOPRAM TAB 10 MG [Concomitant]
  7. IRON TAB 45MG [Concomitant]
  8. ADVIL TAB 200 MG [Concomitant]
  9. VITAMIN D CAP 400 UNIT [Concomitant]

REACTIONS (1)
  - Muscle fatigue [Unknown]
